FAERS Safety Report 19175432 (Version 2)
Quarter: 2021Q2

REPORT INFORMATION
  Report Type: Spontaneous
  Country: CZ (occurrence: CZ)
  Receive Date: 20210423
  Receipt Date: 20210503
  Transmission Date: 20210717
  Serious: Yes (Death, Hospitalization, Other)
  Sender: FDA-Public Use
  Company Number: CZ-GLAXOSMITHKLINE-CZ2021EME088177

PATIENT
  Age: 70 Year
  Sex: Male

DRUGS (1)
  1. MEPOLIZUMAB [Suspect]
     Active Substance: MEPOLIZUMAB
     Indication: PRODUCT USED FOR UNKNOWN INDICATION
     Dosage: UNK
     Dates: start: 20190828

REACTIONS (5)
  - COVID-19 pneumonia [Unknown]
  - Pneumonia viral [Unknown]
  - Respiratory failure [Fatal]
  - Pulmonary embolism [Unknown]
  - Arrhythmia [Fatal]

NARRATIVE: CASE EVENT DATE: 20210215
